FAERS Safety Report 8190696-3 (Version None)
Quarter: 2012Q1

REPORT INFORMATION
  Report Type: 
  Country: None (occurrence: None)
  Receive Date: 20120307
  Receipt Date: 20120224
  Transmission Date: 20120608
  Serious: Yes (Death)
  Sender: FDA-Public Use
  Company Number: US-BRISTOL-MYERS SQUIBB COMPANY-16418220

PATIENT

DRUGS (6)
  1. ARIPIPRAZOLE [Suspect]
     Route: 065
  2. ZIPRASIDONE HYDROCHLORIDE [Suspect]
  3. OLANZAPINE [Suspect]
  4. RISPERIDONE [Suspect]
  5. HALOPERIDOL [Suspect]
  6. QUETIAPINE [Suspect]

REACTIONS (1)
  - DEATH [None]
